FAERS Safety Report 24649609 (Version 1)
Quarter: 2024Q4

REPORT INFORMATION
  Report Type: Report from Study
  Country: CA (occurrence: CA)
  Receive Date: 20241121
  Receipt Date: 20241121
  Transmission Date: 20250115
  Serious: Yes (Other)
  Sender: ABBVIE
  Company Number: CA-ABBVIE-6007936

PATIENT
  Sex: Male

DRUGS (1)
  1. RINVOQ [Suspect]
     Active Substance: UPADACITINIB
     Indication: Crohn^s disease
     Route: 048
     Dates: start: 20240616

REACTIONS (8)
  - Obstruction [Not Recovered/Not Resolved]
  - Faecal calprotectin increased [Recovering/Resolving]
  - Faeces hard [Unknown]
  - Abdominal pain [Not Recovered/Not Resolved]
  - Ankylosing spondylitis [Unknown]
  - Chronic traumatic encephalopathy [Unknown]
  - Ileal stenosis [Unknown]
  - Intestinal dilatation [Unknown]

NARRATIVE: CASE EVENT DATE: 20240101
